FAERS Safety Report 8038045-5 (Version None)
Quarter: 2012Q1

REPORT INFORMATION
  Report Type: 
  Country: None (occurrence: None)
  Receive Date: 20120111
  Receipt Date: 20120103
  Transmission Date: 20120608
  Serious: Yes (Hospitalization)
  Sender: FDA-Public Use
  Company Number: US-ASTRAZENECA-2012SE00598

PATIENT
  Age: 47 Year
  Sex: Female
  Weight: 47.6 kg

DRUGS (8)
  1. VERAPAMIL [Concomitant]
     Indication: HYPERTENSION
     Route: 048
  2. NEXIUM [Suspect]
     Indication: OESOPHAGEAL STENOSIS
     Route: 048
  3. SEROQUEL [Suspect]
     Route: 048
  4. SEROQUEL [Suspect]
     Indication: SLEEP DISORDER
     Dosage: 150-300 MG
     Route: 048
  5. SEROQUEL [Suspect]
     Route: 048
  6. SOMA [Concomitant]
     Indication: MUSCLE RELAXANT THERAPY
     Route: 048
  7. CATAPRES [Concomitant]
     Indication: HYPERTENSION
     Route: 048
  8. CLONAZEPAM [Concomitant]
     Route: 048

REACTIONS (6)
  - CELLULITIS [None]
  - MONOPLEGIA [None]
  - SUBCUTANEOUS ABSCESS [None]
  - ARTHROPOD BITE [None]
  - THERAPEUTIC RESPONSE UNEXPECTED [None]
  - OFF LABEL USE [None]
